FAERS Safety Report 4975525-0 (Version None)
Quarter: 2006Q1

REPORT INFORMATION
  Report Type: 
  Country: None (occurrence: None)
  Receive Date: 20060223
  Receipt Date: 20051027
  Transmission Date: 20060701
  Serious: No
  Sender: FDA-Public Use
  Company Number: SUSI-2005-00798

PATIENT
  Age: 74 Year
  Sex: Male

DRUGS (4)
  1. FOSRENOL [Suspect]
     Dosage: 2.5 TABLETS WITH MEALS, UNK
     Dates: start: 20050801
  2. LASIX [Concomitant]
  3. RESTORIL [Concomitant]
  4. MULTIPLE VITAMINS (ERGOCALCIFEROL, ASCORBIC ACID, TOCOPHEROL, FOLIC AC [Concomitant]

REACTIONS (1)
  - HYPERSENSITIVITY [None]
